FAERS Safety Report 15826757 (Version 1)
Quarter: 2019Q1

REPORT INFORMATION
  Report Type: Spontaneous
  Country: US (occurrence: US)
  Receive Date: 20190115
  Receipt Date: 20190115
  Transmission Date: 20190417
  Serious: Yes (Other)
  Sender: FDA-Public Use
  Company Number: US-REGENERON PHARMACEUTICALS, INC.-2018-13346

PATIENT

DRUGS (3)
  1. COMBIGAN [Concomitant]
     Active Substance: BRIMONIDINE TARTRATE\TIMOLOL MALEATE
     Indication: PRODUCT USED FOR UNKNOWN INDICATION
  2. EYLEA [Suspect]
     Active Substance: AFLIBERCEPT
     Indication: CHOROIDAL NEOVASCULARISATION
     Dosage: UNK, EVERY 3 MONTHS, LAST PRIOR EVENT, OS
     Route: 031
     Dates: start: 20180125, end: 20180125
  3. EYLEA [Suspect]
     Active Substance: AFLIBERCEPT
     Indication: NEOVASCULAR AGE-RELATED MACULAR DEGENERATION
     Dosage: OS, EVERY 3 MONTHS
     Route: 031
     Dates: start: 20150417

REACTIONS (1)
  - Eye inflammation [Recovered/Resolved]

NARRATIVE: CASE EVENT DATE: 20180129
